FAERS Safety Report 12607107 (Version 1)
Quarter: 2016Q3

REPORT INFORMATION
  Report Type: Spontaneous
  Country: GF (occurrence: FR)
  Receive Date: 20160729
  Receipt Date: 20160729
  Transmission Date: 20161109
  Serious: Yes (Other)
  Sender: FDA-Public Use
  Company Number: GF-ASTRAZENECA-2016SE80687

PATIENT
  Age: 51 Year
  Sex: Female

DRUGS (1)
  1. BYDUREON [Suspect]
     Active Substance: EXENATIDE
     Route: 065

REACTIONS (3)
  - Injection site nodule [Recovered/Resolved]
  - Injection site bruising [Unknown]
  - Injection site pain [Unknown]
